FAERS Safety Report 17878300 (Version 1)
Quarter: 2020Q2

REPORT INFORMATION
  Report Type: Spontaneous
  Country: US (occurrence: US)
  Receive Date: 20200610
  Receipt Date: 20200610
  Transmission Date: 20200714
  Serious: No
  Sender: FDA-Public Use
  Company Number: US-JNJFOC-20200606137

PATIENT
  Age: 44 Year
  Sex: Male
  Weight: 50 kg

DRUGS (1)
  1. MENS ROGAINE EXTRA STRENGTH [Suspect]
     Active Substance: MINOXIDIL
     Indication: ALOPECIA
     Dosage: DOSE: 1 PUMP TWICE A DAY?PRODUCT LAST ADMINISTERED ON 3-JUN-2020
     Route: 061
     Dates: start: 20200601

REACTIONS (2)
  - Application site rash [Recovered/Resolved]
  - Incorrect dose administered [Unknown]

NARRATIVE: CASE EVENT DATE: 20200601
